FAERS Safety Report 7089931-4 (Version None)
Quarter: 2010Q4

REPORT INFORMATION
  Report Type: 
  Country: None (occurrence: None)
  Receive Date: 20101108
  Receipt Date: 20101027
  Transmission Date: 20110411
  Serious: Yes (Disabling)
  Sender: FDA-Public Use
  Company Number: NL-AMGEN-QUU437525

PATIENT

DRUGS (10)
  1. ENBREL [Suspect]
     Dosage: UNK UNK, QWK
     Route: 058
     Dates: start: 20090701
  2. ENBREL [Suspect]
     Route: 058
     Dates: start: 20090417, end: 20091101
  3. ENBREL [Suspect]
     Route: 058
     Dates: start: 20091201
  4. PREDNISOLONE [Suspect]
     Indication: RHEUMATOID ARTHRITIS
     Route: 048
     Dates: start: 20090101
  5. PREDNISOLONE [Suspect]
     Route: 048
  6. METHOTREXATE [Suspect]
     Indication: RHEUMATOID ARTHRITIS
     Route: 048
     Dates: start: 20090101
  7. METHOTREXATE [Suspect]
     Route: 048
  8. CALCIUM WITH VITAMIN D [Concomitant]
     Dosage: UNK UNK, QD
  9. CALCIUM WITH VITAMIN D [Concomitant]
  10. FOLIC ACID [Concomitant]
     Dosage: 5 MG, QWK

REACTIONS (5)
  - BLINDNESS [None]
  - DRUG INEFFECTIVE [None]
  - EYE HAEMORRHAGE [None]
  - EYE INFECTION [None]
  - RETINAL DETACHMENT [None]
